FAERS Safety Report 4540335-5 (Version None)
Quarter: 2004Q4

REPORT INFORMATION
  Report Type: 
  Country: None (occurrence: None)
  Receive Date: 20041223
  Receipt Date: 20041213
  Transmission Date: 20050328
  Serious: Yes (Hospitalization)
  Sender: FDA-Public Use
  Company Number: 2004UW16486

PATIENT
  Age: 61 Year
  Sex: Male
  Weight: 166.9237 kg

DRUGS (5)
  1. CRESTOR [Suspect]
     Indication: LIPIDS INCREASED
     Dosage: 10 MG DAILY PO
     Route: 048
     Dates: start: 20040315, end: 20040405
  2. LIPITOR [Concomitant]
  3. MONOPRIL [Concomitant]
  4. WARFARIN SODIUM [Concomitant]
  5. NIACIN [Concomitant]

REACTIONS (7)
  - BLOOD IMMUNOGLOBULIN A INCREASED [None]
  - C-REACTIVE PROTEIN INCREASED [None]
  - MOBILITY DECREASED [None]
  - MUSCLE DISORDER [None]
  - PAIN IN EXTREMITY [None]
  - RED BLOOD CELL SEDIMENTATION RATE INCREASED [None]
  - VASCULITIS [None]
